FAERS Safety Report 12654894 (Version 1)
Quarter: 2016Q3

REPORT INFORMATION
  Report Type: Report from Study
  Country: US (occurrence: US)
  Receive Date: 20160816
  Receipt Date: 20160816
  Transmission Date: 20161109
  Serious: Yes (Other)
  Sender: FDA-Public Use
  Company Number: US-AMGEN-USASL2016103123

PATIENT
  Age: 63 Year
  Sex: Female

DRUGS (2)
  1. ENBREL [Suspect]
     Active Substance: ETANERCEPT
     Indication: RHEUMATOID ARTHRITIS
     Dosage: UNK
     Route: 065
     Dates: start: 20110727
  2. ENBREL [Suspect]
     Active Substance: ETANERCEPT
     Dosage: UNK, AS NECESSARY
     Route: 065

REACTIONS (2)
  - Intentional product misuse [Unknown]
  - Rheumatoid arthritis [Unknown]
